FAERS Safety Report 9943156 (Version 2)
Quarter: 2014Q1

REPORT INFORMATION
  Report Type: Spontaneous
  Country: NL (occurrence: NL)
  Receive Date: 20140303
  Receipt Date: 20140310
  Transmission Date: 20141002
  Serious: Yes (Hospitalization, Other)
  Sender: FDA-Public Use
  Company Number: PHHY2014NL023172

PATIENT
  Age: 64 Year
  Sex: Male

DRUGS (2)
  1. VENLAFAXINE [Suspect]
     Indication: BIPOLAR II DISORDER
     Dosage: 75 MG, UNK
  2. VENLAFAXINE [Suspect]
     Dosage: 37.5 MG, UNK

REACTIONS (4)
  - Hypomania [Recovering/Resolving]
  - Abnormal behaviour [Recovering/Resolving]
  - Insomnia [Recovering/Resolving]
  - Drug withdrawal syndrome [Recovering/Resolving]
